FAERS Safety Report 21392824 (Version 1)
Quarter: 2022Q3

REPORT INFORMATION
  Report Type: Spontaneous
  Country: US (occurrence: US)
  Receive Date: 20220929
  Receipt Date: 20220929
  Transmission Date: 20221027
  Serious: No
  Sender: FDA-Public Use
  Company Number: US-SANOFI-01292331

PATIENT
  Age: 76 Year
  Sex: Male

DRUGS (1)
  1. DUPIXENT [Suspect]
     Active Substance: DUPILUMAB
     Dosage: DRUG TREATMENT DURATION:APPROXIMATELY 10AUG2022
     Dates: start: 20220810

REACTIONS (2)
  - Pain in extremity [Unknown]
  - Drug ineffective [Unknown]
